FAERS Safety Report 19110463 (Version 1)
Quarter: 2021Q2

REPORT INFORMATION
  Report Type: Other
  Country: CA (occurrence: CA)
  Receive Date: 20210409
  Receipt Date: 20210409
  Transmission Date: 20210717
  Serious: Yes (Other)
  Sender: FDA-Public Use
  Company Number: CA-MERZ PHARMACEUTICALS GMBH-21-01272

PATIENT
  Age: 49 Year
  Sex: Female

DRUGS (4)
  1. NATALIZUMAB [Concomitant]
     Active Substance: NATALIZUMAB
     Route: 042
     Dates: start: 2017
  2. AMANTADINE. [Suspect]
     Active Substance: AMANTADINE HYDROCHLORIDE
     Indication: MULTIPLE SCLEROSIS
     Dosage: 200 MG
     Route: 048
     Dates: start: 2012
  3. BOTULINUM TOXIN TYPE A [Suspect]
     Active Substance: BOTULINUM TOXIN TYPE A
     Dates: start: 2013
  4. BOTULINUM TOXIN TYPE A [Suspect]
     Active Substance: BOTULINUM TOXIN TYPE A
     Indication: MUSCLE SPASTICITY

REACTIONS (5)
  - Corneal oedema [Recovering/Resolving]
  - Iridocyclitis [Unknown]
  - Myasthenic syndrome [Unknown]
  - Off label use [Unknown]
  - Corneal decompensation [Unknown]

NARRATIVE: CASE EVENT DATE: 2013
